FAERS Safety Report 22039371 (Version 1)
Quarter: 2023Q1

REPORT INFORMATION
  Report Type: Spontaneous
  Country: JP (occurrence: JP)
  Receive Date: 20230227
  Receipt Date: 20230227
  Transmission Date: 20230417
  Serious: Yes (Other)
  Sender: FDA-Public Use
  Company Number: JP-GLAXOSMITHKLINE-JP2023JPN028912

PATIENT

DRUGS (1)
  1. RELENZA [Suspect]
     Active Substance: ZANAMIVIR
     Indication: Influenza
     Dosage: UNK

REACTIONS (4)
  - Throat irritation [Unknown]
  - Laryngeal pain [Unknown]
  - Pharyngolaryngeal abscess [Unknown]
  - Rash [Unknown]
